FAERS Safety Report 24224386 (Version 2)
Quarter: 2024Q3

REPORT INFORMATION
  Report Type: Spontaneous
  Country: RU (occurrence: RU)
  Receive Date: 20240819
  Receipt Date: 20240830
  Transmission Date: 20241017
  Serious: Yes (Other)
  Sender: BAYER
  Company Number: RU-BAYER-2024A119127

PATIENT
  Age: 11 Year
  Sex: Male

DRUGS (1)
  1. NEXAVAR [Suspect]
     Active Substance: SORAFENIB
     Indication: Hepatocellular carcinoma
     Dosage: 400 MG / DAY
     Dates: start: 2019

REACTIONS (3)
  - Haematotoxicity [None]
  - Diarrhoea [None]
  - Nausea [None]
